FAERS Safety Report 7537410-X (Version None)
Quarter: 2011Q2

REPORT INFORMATION
  Report Type: 
  Country: None (occurrence: None)
  Receive Date: 20110608
  Receipt Date: 20110608
  Transmission Date: 20111010
  Serious: Yes (Other)
  Sender: FDA-Public Use
  Company Number: None

PATIENT
  Sex: Female
  Weight: 77.1115 kg

DRUGS (1)
  1. NICOTINE [Suspect]
     Dosage: 12 TIMES PER DAY INHAL
     Route: 055
     Dates: start: 20110101, end: 20110303

REACTIONS (3)
  - PNEUMONITIS CHEMICAL [None]
  - HYPOXIA [None]
  - BRONCHIAL HYPERREACTIVITY [None]
